FAERS Safety Report 17286878 (Version 1)
Quarter: 2020Q1

REPORT INFORMATION
  Report Type: Spontaneous
  Country: GB (occurrence: GB)
  Receive Date: 20200120
  Receipt Date: 20200120
  Transmission Date: 20200409
  Serious: Yes (Other)
  Sender: FDA-Public Use
  Company Number: GB-AUROBINDO-AUR-APL-2020-002313

PATIENT
  Age: 74 Year
  Sex: Female

DRUGS (10)
  1. AMLODIPINE [Suspect]
     Active Substance: AMLODIPINE BESYLATE
     Indication: PRODUCT USED FOR UNKNOWN INDICATION
     Dosage: UNK
     Route: 065
     Dates: start: 20191104, end: 20191114
  2. ROSUVASTATIN. [Concomitant]
     Active Substance: ROSUVASTATIN
     Indication: PRODUCT USED FOR UNKNOWN INDICATION
     Dosage: UNK
     Route: 065
  3. PREGABALIN. [Concomitant]
     Active Substance: PREGABALIN
     Indication: PRODUCT USED FOR UNKNOWN INDICATION
     Dosage: UNK
     Route: 065
  4. ZOPICLONE [Concomitant]
     Active Substance: ZOPICLONE
     Indication: PRODUCT USED FOR UNKNOWN INDICATION
     Dosage: UNK
     Route: 065
  5. DIAZEPAM. [Concomitant]
     Active Substance: DIAZEPAM
     Indication: PRODUCT USED FOR UNKNOWN INDICATION
     Dosage: UNK
     Route: 065
  6. PLEGRIDY [Suspect]
     Active Substance: PEGINTERFERON BETA-1A
     Dosage: 125 MICROGRAM, 14 DAY (INITIATION 94MCG)
     Route: 058
     Dates: start: 20190404
  7. MIRTAZAPINE. [Concomitant]
     Active Substance: MIRTAZAPINE
     Indication: PRODUCT USED FOR UNKNOWN INDICATION
     Dosage: UNK
     Route: 065
  8. PLEGRIDY [Suspect]
     Active Substance: PEGINTERFERON BETA-1A
     Dosage: 94 MICROGRAM, 14 DAY
     Route: 058
     Dates: start: 20190404
  9. PLEGRIDY [Suspect]
     Active Substance: PEGINTERFERON BETA-1A
     Dosage: 125 MICROGRAM, 2 WEEK
     Route: 058
     Dates: start: 20190607
  10. PLEGRIDY [Suspect]
     Active Substance: PEGINTERFERON BETA-1A
     Indication: RELAPSING-REMITTING MULTIPLE SCLEROSIS
     Dosage: 125 MICROGRAM, 2 WEEK (INITIATION 94MCG)
     Route: 058
     Dates: start: 20190403

REACTIONS (21)
  - Hot flush [Recovered/Resolved]
  - Liver function test increased [Unknown]
  - Nasopharyngitis [Not Recovered/Not Resolved]
  - Myalgia [Recovered/Resolved]
  - Injection site erythema [Not Recovered/Not Resolved]
  - Feeling hot [Not Recovered/Not Resolved]
  - Pain [Recovered/Resolved with Sequelae]
  - Eyelids pruritus [Not Recovered/Not Resolved]
  - Pruritus [Recovered/Resolved]
  - Renal function test abnormal [Not Recovered/Not Resolved]
  - Periorbital swelling [Unknown]
  - Joint swelling [Not Recovered/Not Resolved]
  - Erythema [Not Recovered/Not Resolved]
  - Gout [Not Recovered/Not Resolved]
  - Cellulitis [Not Recovered/Not Resolved]
  - Pyrexia [Recovered/Resolved]
  - Erythema of eyelid [Not Recovered/Not Resolved]
  - Purulent discharge [Recovered/Resolved]
  - Peripheral swelling [Not Recovered/Not Resolved]
  - Influenza like illness [Recovered/Resolved]
  - Infection [Not Recovered/Not Resolved]

NARRATIVE: CASE EVENT DATE: 20190418
